FAERS Safety Report 20735491 (Version 2)
Quarter: 2022Q2

REPORT INFORMATION
  Report Type: Spontaneous
  Country: JP (occurrence: JP)
  Receive Date: 20220421
  Receipt Date: 20220429
  Transmission Date: 20220721
  Serious: Yes (Death, Other)
  Sender: FDA-Public Use
  Company Number: JP-ASTELLAS-2022JP005761

PATIENT
  Age: 8 Decade
  Sex: Male

DRUGS (1)
  1. PADCEV [Suspect]
     Active Substance: ENFORTUMAB VEDOTIN-EJFV
     Indication: Transitional cell carcinoma
     Dosage: UNK UNK, ONCE WEEKLY FOR THREE CONSECUTIVE WEEKS, INTERRUPTION FOR THE 4TH WEEK
     Route: 041
     Dates: start: 20220309

REACTIONS (1)
  - Death [Fatal]
